FAERS Safety Report 9219269 (Version 1)
Quarter: 2013Q2

REPORT INFORMATION
  Report Type: Spontaneous
  Country: US (occurrence: None)
  Receive Date: 20130404
  Receipt Date: 20130404
  Transmission Date: 20140414
  Serious: Yes (Life-Threatening, Hospitalization, Other)
  Sender: FDA-Public Use
  Company Number: SYM-2013-02303

PATIENT
  Age: 14 Year
  Sex: Female

DRUGS (2)
  1. BUPROPION HYDROCHLORIDE [Suspect]
     Indication: BIPOLAR DISORDER
  2. LAMOTRIGINE [Suspect]
     Indication: BIPOLAR DISORDER

REACTIONS (8)
  - Drug reaction with eosinophilia and systemic symptoms [None]
  - Tubulointerstitial nephritis [None]
  - Hepatitis [None]
  - Respiratory failure [None]
  - Cardiac arrest [None]
  - Electrocardiogram QT prolonged [None]
  - Blood magnesium decreased [None]
  - Blood potassium increased [None]
